FAERS Safety Report 7457164-5 (Version None)
Quarter: 2011Q2

REPORT INFORMATION
  Report Type: 
  Country: None (occurrence: None)
  Receive Date: 20110504
  Receipt Date: 20110419
  Transmission Date: 20111010
  Serious: Yes (Life-Threatening, Hospitalization, Other)
  Sender: FDA-Public Use
  Company Number: US-JNJFOC-20110411311

PATIENT
  Age: 55 Year
  Sex: Female

DRUGS (8)
  1. BENZODIAZEPINES NOS [Suspect]
     Indication: AGITATION
     Route: 065
  2. PROPYLENE GLYCOL [Suspect]
     Indication: PRODUCT USED FOR UNKNOWN INDICATION
     Route: 065
  3. TRICYCLIC ANTIDEPRESSANTS [Suspect]
     Indication: PRODUCT USED FOR UNKNOWN INDICATION
     Route: 065
  4. ULTRAM [Suspect]
     Indication: PRODUCT USED FOR UNKNOWN INDICATION
     Route: 065
  5. ETHANOL [Suspect]
     Indication: PRODUCT USED FOR UNKNOWN INDICATION
     Route: 065
  6. SSRI [Suspect]
     Indication: PRODUCT USED FOR UNKNOWN INDICATION
     Route: 065
  7. BUPROPION [Suspect]
     Indication: PRODUCT USED FOR UNKNOWN INDICATION
     Route: 065
  8. ANTI PSYCHOTICS [Suspect]
     Indication: PRODUCT USED FOR UNKNOWN INDICATION
     Route: 065

REACTIONS (9)
  - TOXICITY TO VARIOUS AGENTS [None]
  - SOMNOLENCE [None]
  - PNEUMONIA ASPIRATION [None]
  - HYPOTENSION [None]
  - UNRESPONSIVE TO STIMULI [None]
  - MULTIPLE DRUG OVERDOSE [None]
  - BRADYCARDIA [None]
  - PULMONARY OEDEMA [None]
  - AGITATION [None]
